FAERS Safety Report 8246238-7 (Version None)
Quarter: 2012Q1

REPORT INFORMATION
  Report Type: 
  Country: None (occurrence: None)
  Receive Date: 20120330
  Receipt Date: 20101214
  Transmission Date: 20120608
  Serious: No
  Sender: FDA-Public Use
  Company Number: US-MYLANLABS-2011S1001245

PATIENT
  Age: 7 Year
  Sex: Female

DRUGS (1)
  1. ALBUTEROL SULATE [Suspect]

REACTIONS (2)
  - TOOTH LOSS [None]
  - DENTAL CARIES [None]
